FAERS Safety Report 8531983-6 (Version None)
Quarter: 2012Q3

REPORT INFORMATION
  Report Type: 
  Country: None (occurrence: None)
  Receive Date: 20120723
  Receipt Date: 20120719
  Transmission Date: 20120928
  Serious: Yes (Death)
  Sender: FDA-Public Use
  Company Number: CHPA2012US015512

PATIENT
  Sex: Male

DRUGS (1)
  1. MAALOX ANTACID BARRIER [Suspect]
     Indication: ULCER
     Dosage: UNK, UNK
     Route: 048

REACTIONS (2)
  - DEATH [None]
  - OFF LABEL USE [None]
